FAERS Safety Report 7403491-7 (Version None)
Quarter: 2011Q2

REPORT INFORMATION
  Report Type: 
  Country: None (occurrence: None)
  Receive Date: 20110408
  Receipt Date: 20110325
  Transmission Date: 20111010
  Serious: Yes (Other)
  Sender: FDA-Public Use
  Company Number: CA-JNJFOC-20110304276

PATIENT
  Sex: Female
  Weight: 76.7 kg

DRUGS (5)
  1. REMICADE [Suspect]
     Indication: PSORIASIS
     Route: 042
  2. REMICADE [Suspect]
     Route: 042
  3. ORTHO TRI-CYCLEN [Concomitant]
  4. BENADRYL [Concomitant]
     Indication: PREMEDICATION
     Route: 042
  5. ACETAMINOPHEN [Concomitant]
     Indication: PREMEDICATION
     Route: 048

REACTIONS (8)
  - BACK PAIN [None]
  - PRURITUS GENERALISED [None]
  - DRUG EXPOSURE DURING PREGNANCY [None]
  - STOMATITIS [None]
  - SENSATION OF HEAVINESS [None]
  - CHEST PAIN [None]
  - INFUSION RELATED REACTION [None]
  - BREECH PRESENTATION [None]
